FAERS Safety Report 6531283-X (Version None)
Quarter: 2010Q1

REPORT INFORMATION
  Report Type: 
  Country: None (occurrence: None)
  Receive Date: 20100108
  Receipt Date: 20091223
  Transmission Date: 20100710
  Serious: Yes (Hospitalization)
  Sender: FDA-Public Use
  Company Number: PH-BAYER-201010546GPV

PATIENT
  Age: 89 Year
  Sex: Male

DRUGS (1)
  1. NEXAVAR [Suspect]
     Indication: HEPATIC NEOPLASM MALIGNANT
     Dosage: TOTAL DAILY DOSE: 800 MG
     Route: 048

REACTIONS (3)
  - ANAL ULCER [None]
  - HYPOALBUMINAEMIA [None]
  - NAUSEA [None]
